FAERS Safety Report 5289258-7 (Version None)
Quarter: 2007Q2

REPORT INFORMATION
  Report Type: 
  Country: None (occurrence: None)
  Receive Date: 20070403
  Receipt Date: 20070403
  Transmission Date: 20071010
  Serious: Yes (Other)
  Sender: FDA-Public Use
  Company Number: None

PATIENT
  Sex: Male

DRUGS (5)
  1. REVLIMID [Suspect]
     Indication: MULTIPLE MYELOMA
     Dosage: 15MG   DAILY FOR 21 DAYS   PO
     Route: 048
  2. GEMFIBROZIL [Concomitant]
  3. FLUTICASONE PROPIONATE [Concomitant]
  4. ALLEGRA [Concomitant]
  5. ZANTAC [Concomitant]

REACTIONS (4)
  - ABDOMINAL PAIN UPPER [None]
  - NAUSEA [None]
  - RASH [None]
  - URTICARIA [None]
